FAERS Safety Report 26080726 (Version 2)
Quarter: 2025Q4

REPORT INFORMATION
  Report Type: Spontaneous
  Country: US (occurrence: US)
  Receive Date: 20251124
  Receipt Date: 20251224
  Transmission Date: 20260118
  Serious: No
  Sender: LEO PHARM
  Company Number: US-LEO Pharma-384399

PATIENT
  Age: 32 Year
  Sex: Female

DRUGS (1)
  1. ADBRY [Suspect]
     Active Substance: TRALOKINUMAB-LDRM
     Indication: Eczema
     Dosage: TREATMENT ONGOING?? 2-300MG PENS UNDER THE SKIN ON DAY 1 (10/29/25) THEN 1-300MG PEN EVERY 14 DAYS.
     Route: 058
     Dates: start: 20251029

REACTIONS (5)
  - Insomnia [Unknown]
  - Mood altered [Unknown]
  - Respiratory tract infection [Recovered/Resolved]
  - Eczema [Unknown]
  - Loss of personal independence in daily activities [Unknown]
